FAERS Safety Report 8321685-3 (Version None)
Quarter: 2012Q2

REPORT INFORMATION
  Report Type: 
  Country: None (occurrence: None)
  Receive Date: 20120430
  Receipt Date: 20091103
  Transmission Date: 20120825
  Serious: No
  Sender: FDA-Public Use
  Company Number: US-TEVA-2009012094

PATIENT
  Age: 33 Year
  Sex: Male
  Weight: 95.34 kg

DRUGS (3)
  1. NUVIGIL [Suspect]
     Indication: SOMNOLENCE
     Route: 048
     Dates: start: 20090701
  2. LAMICTAL [Concomitant]
  3. SUBOXONE [Concomitant]

REACTIONS (4)
  - SOMNOLENCE [None]
  - PSYCHOMOTOR HYPERACTIVITY [None]
  - MANIA [None]
  - INSOMNIA [None]
